FAERS Safety Report 7215511-3 (Version None)
Quarter: 2011Q1

REPORT INFORMATION
  Report Type: 
  Country: None (occurrence: None)
  Receive Date: 20110107
  Receipt Date: 20101227
  Transmission Date: 20110831
  Serious: Yes (Hospitalization)
  Sender: FDA-Public Use
  Company Number: B0690743A

PATIENT
  Age: 62 Year
  Sex: Male

DRUGS (4)
  1. SERETIDE [Suspect]
     Dosage: 1PUFF TWICE PER DAY
     Route: 048
     Dates: start: 20070101
  2. THEOPHYLLINE [Concomitant]
     Route: 065
  3. METHYLPREDNISOLONE [Concomitant]
  4. TERBUTALINE SULFATE [Concomitant]
     Dosage: 5MG PER DAY

REACTIONS (13)
  - ABDOMINAL PAIN [None]
  - WHEEZING [None]
  - OESOPHAGEAL CANDIDIASIS [None]
  - DIARRHOEA [None]
  - GASTROOESOPHAGEAL REFLUX DISEASE [None]
  - GASTRITIS [None]
  - DUODENAL ULCER [None]
  - FAECES DISCOLOURED [None]
  - RESPIRATORY RATE INCREASED [None]
  - TREATMENT NONCOMPLIANCE [None]
  - GALLBLADDER DISORDER [None]
  - HYPERAEMIA [None]
  - ERUCTATION [None]
